FAERS Safety Report 6229701-X (Version None)
Quarter: 2009Q2

REPORT INFORMATION
  Report Type: 
  Country: None (occurrence: None)
  Receive Date: 20090609
  Receipt Date: 20080424
  Transmission Date: 20091009
  Serious: Yes (Other)
  Sender: FDA-Public Use
  Company Number: 002#2#2008-00292

PATIENT
  Sex: Male
  Weight: 103.8 kg

DRUGS (13)
  1. ROTIGOTINE [Suspect]
     Indication: PARKINSON'S DISEASE
     Dosage: (2 MG QD TRANSDERMAL), (4 MG QD TRANSDERMAL), (6 MG QD TRANSDERMAL), (2 MG QD TRANSDERMAL)
     Route: 062
     Dates: start: 20070801, end: 20070901
  2. ROTIGOTINE [Suspect]
     Indication: PARKINSON'S DISEASE
     Dosage: (2 MG QD TRANSDERMAL), (4 MG QD TRANSDERMAL), (6 MG QD TRANSDERMAL), (2 MG QD TRANSDERMAL)
     Route: 062
     Dates: start: 20070901, end: 20071001
  3. ROTIGOTINE [Suspect]
     Indication: PARKINSON'S DISEASE
     Dosage: (2 MG QD TRANSDERMAL), (4 MG QD TRANSDERMAL), (6 MG QD TRANSDERMAL), (2 MG QD TRANSDERMAL)
     Route: 062
     Dates: start: 20071001, end: 20071001
  4. ROTIGOTINE [Suspect]
     Indication: PARKINSON'S DISEASE
     Dosage: (2 MG QD TRANSDERMAL), (4 MG QD TRANSDERMAL), (6 MG QD TRANSDERMAL), (2 MG QD TRANSDERMAL)
     Route: 062
     Dates: start: 20080401, end: 20080427
  5. CARBIDOPA AND LEVODOPA [Suspect]
     Indication: PARKINSON'S DISEASE
     Dosage: 25/100 UP TO 5 PILLS EVERY DAY ORAL
     Route: 048
     Dates: start: 20060101
  6. LORAZEPAM [Concomitant]
  7. FUROSEMIDE [Concomitant]
  8. POTASSIUM CHLORIDE [Concomitant]
  9. ASPIRIN [Concomitant]
  10. RAMIPRIL [Concomitant]
  11. LEVOTHYROXINE SODIUM [Concomitant]
  12. TROSPIUM [Concomitant]
  13. ACETAMINOPHEN AND HYDROCODONE BITARTRATE [Concomitant]

REACTIONS (3)
  - CARDIOMEGALY [None]
  - LIVER DISORDER [None]
  - RENAL DISORDER [None]
